FAERS Safety Report 19869563 (Version 1)
Quarter: 2021Q3

REPORT INFORMATION
  Report Type: Spontaneous
  Country: US (occurrence: US)
  Receive Date: 20210922
  Receipt Date: 20210922
  Transmission Date: 20211014
  Serious: Yes (Hospitalization)
  Sender: FDA-Public Use
  Company Number: US-GW PHARMA-202109USGW04498

PATIENT

DRUGS (1)
  1. EPIDIOLEX [Suspect]
     Active Substance: CANNABIDIOL
     Indication: EPILEPSY
     Dosage: 300 MILLIGRAM, BID (FIRST SHIPPED: 14?JAN?2019)
     Route: 048
     Dates: start: 201901

REACTIONS (12)
  - Seizure [Unknown]
  - Feeding disorder [Unknown]
  - Asthenia [Unknown]
  - Dysphagia [Unknown]
  - Otorrhoea [Unknown]
  - Seizure [Unknown]
  - Fall [Unknown]
  - Balance disorder [Unknown]
  - Weight decreased [Unknown]
  - Vertigo [Unknown]
  - Muscular weakness [Unknown]
  - Product use in unapproved indication [Unknown]

NARRATIVE: CASE EVENT DATE: 2020
